FAERS Safety Report 12341637 (Version 2)
Quarter: 2016Q3

REPORT INFORMATION
  Report Type: Spontaneous
  Country: CA (occurrence: CA)
  Receive Date: 20160506
  Receipt Date: 20160704
  Transmission Date: 20161109
  Serious: Yes (Other)
  Sender: FDA-Public Use
  Company Number: CA-009507513-1605CAN003545

PATIENT
  Age: 70 Year
  Sex: Female

DRUGS (2)
  1. LORATADINE. [Suspect]
     Active Substance: LORATADINE
     Indication: PRODUCT USED FOR UNKNOWN INDICATION
     Dosage: UNK
     Dates: start: 201604
  2. DESLORATADINE. [Suspect]
     Active Substance: DESLORATADINE
     Indication: PRODUCT USED FOR UNKNOWN INDICATION
     Dosage: UNK
     Dates: start: 2013

REACTIONS (8)
  - Swelling [Unknown]
  - Eye pruritus [Unknown]
  - Feeling abnormal [Unknown]
  - Drug ineffective [Unknown]
  - Eye irritation [Unknown]
  - Peripheral swelling [Unknown]
  - Expired product administered [Unknown]
  - Swelling face [Unknown]

NARRATIVE: CASE EVENT DATE: 201604
